FAERS Safety Report 8143326-0 (Version None)
Quarter: 2012Q1

REPORT INFORMATION
  Report Type: 
  Country: None (occurrence: None)
  Receive Date: 20120217
  Receipt Date: 20120209
  Transmission Date: 20120608
  Serious: Yes (Other)
  Sender: FDA-Public Use
  Company Number: US-ABBOTT-12P-163-0903574-00

PATIENT
  Age: 44 Year
  Sex: Female

DRUGS (5)
  1. PRILOSEC [Concomitant]
     Indication: GASTROOESOPHAGEAL REFLUX DISEASE
  2. ALIGN PROBIOTICS [Concomitant]
     Indication: PRODUCT USED FOR UNKNOWN INDICATION
     Dosage: DAILY
  3. HUMIRA [Suspect]
     Indication: CROHN'S DISEASE
     Route: 058
     Dates: start: 20100610
  4. LIALDA [Concomitant]
     Indication: CROHN'S DISEASE
  5. ZOLOFT [Concomitant]
     Indication: ANXIETY

REACTIONS (5)
  - DIARRHOEA [None]
  - MALAISE [None]
  - OROPHARYNGEAL PAIN [None]
  - FATIGUE [None]
  - HYPERTONIC BLADDER [None]
